FAERS Safety Report 4874339-X (Version None)
Quarter: 2005Q4

REPORT INFORMATION
  Report Type: 
  Country: None (occurrence: None)
  Receive Date: 20051201
  Receipt Date: 20050810
  Transmission Date: 20060501
  Serious: No
  Sender: FDA-Public Use
  Company Number: 2005PV001035

PATIENT
  Age: 54 Year
  Sex: Female
  Weight: 145.151 kg

DRUGS (6)
  1. BYETTA [Suspect]
     Indication: DIABETES MELLITUS NON-INSULIN-DEPENDENT
     Dosage: SEE IMAGE
     Route: 058
     Dates: start: 20050809, end: 20050907
  2. BYETTA [Suspect]
     Indication: DIABETES MELLITUS NON-INSULIN-DEPENDENT
     Dosage: SEE IMAGE
     Route: 058
     Dates: start: 20050908
  3. ACTOS [Concomitant]
  4. GLYBURIDE [Concomitant]
  5. BLOOD PRESSURE MEDICATIONS [Concomitant]
  6. MEDICATION UNSPECIFIED [Concomitant]

REACTIONS (7)
  - DECREASED APPETITE [None]
  - DIZZINESS [None]
  - HEADACHE [None]
  - INJECTION SITE BRUISING [None]
  - NAUSEA [None]
  - VOMITING [None]
  - WEIGHT DECREASED [None]
